FAERS Safety Report 25992991 (Version 5)
Quarter: 2025Q4

REPORT INFORMATION
  Report Type: Report from Study
  Country: US (occurrence: US)
  Receive Date: 20251103
  Receipt Date: 20251202
  Transmission Date: 20260117
  Serious: Yes (Hospitalization, Other)
  Sender: ABBVIE
  Company Number: US-ABBVIE-6525434

PATIENT
  Age: 74 Year
  Sex: Male
  Weight: 112.03 kg

DRUGS (9)
  1. SKYRIZI [Suspect]
     Active Substance: RISANKIZUMAB-RZAA
     Indication: Psoriasis
     Dosage: FORM STRENGTH :150 MILLIGRAM?SOLUTION FOR INJECTION IN PRE-FILLED PEN
     Route: 058
     Dates: start: 20200101
  2. JARDIANCE [Concomitant]
     Active Substance: EMPAGLIFLOZIN
     Indication: Cardiac failure
  3. FUROSEMIDE [Suspect]
     Active Substance: FUROSEMIDE
     Indication: Oedema peripheral
     Route: 065
  4. ATORVASTATIN [Concomitant]
     Active Substance: ATORVASTATIN
     Indication: Blood cholesterol increased
  5. CARVEDILOL [Concomitant]
     Active Substance: CARVEDILOL
     Indication: Cardiomyopathy
  6. ESCITALOPRAM [Concomitant]
     Active Substance: ESCITALOPRAM OXALATE
     Indication: Anxiety
  7. TRELEGY ELLIPTA [Concomitant]
     Active Substance: FLUTICASONE FUROATE\UMECLIDINIUM BROMIDE\VILANTEROL TRIFENATATE
     Indication: Product used for unknown indication
  8. BUMETANIDE [Suspect]
     Active Substance: BUMETANIDE
     Indication: Oedema peripheral
     Route: 065
  9. SPIRONOLACTONE [Suspect]
     Active Substance: SPIRONOLACTONE
     Indication: Oedema peripheral
     Route: 065
     Dates: start: 202507

REACTIONS (11)
  - Wound [Recovered/Resolved]
  - Muscular weakness [Recovered/Resolved]
  - Deafness [Unknown]
  - Wound [Recovered/Resolved]
  - Fall [Recovered/Resolved]
  - Sepsis [Recovered/Resolved]
  - Balance disorder [Recovered/Resolved]
  - Weight decreased [Recovering/Resolving]
  - Prostate cancer [Recovered/Resolved]
  - Gait disturbance [Recovering/Resolving]
  - Drug ineffective [Unknown]

NARRATIVE: CASE EVENT DATE: 20230501
